FAERS Safety Report 5165923-7 (Version None)
Quarter: 2006Q4

REPORT INFORMATION
  Report Type: 
  Country: None (occurrence: None)
  Receive Date: 20061206
  Receipt Date: 20061129
  Transmission Date: 20070319
  Serious: Yes (Other)
  Sender: FDA-Public Use
  Company Number: IT-BOEHRINGER INGELHEIM PHARMACEUTICALS, INC.-2006-DE-06334GD

PATIENT

DRUGS (2)
  1. NEVIRAPINE [Suspect]
     Indication: HIV TEST POSITIVE
  2. N(T)RTIS [Suspect]
     Indication: HIV TEST POSITIVE

REACTIONS (1)
  - DRUG RESISTANCE [None]
